FAERS Safety Report 4401903-4 (Version None)
Quarter: 2004Q2

REPORT INFORMATION
  Report Type: 
  Country: None (occurrence: None)
  Receive Date: 20040615
  Receipt Date: 20040615
  Transmission Date: 20050107
  Serious: Yes (Other)
  Sender: FDA-Public Use
  Company Number: None

PATIENT
  Age: 30 Year
  Sex: Female

DRUGS (2)
  1. ORTHO TRI-CYCLEN [Suspect]
     Dosage: TABLETS
  2. ORTHO CYCLEN-28 [Suspect]
     Dosage: TABLET

REACTIONS (1)
  - MEDICATION ERROR [None]
